FAERS Safety Report 18911227 (Version 1)
Quarter: 2021Q1

REPORT INFORMATION
  Report Type: Report from Study
  Country: BR (occurrence: BR)
  Receive Date: 20210218
  Receipt Date: 20210218
  Transmission Date: 20210420
  Serious: Yes (Other)
  Sender: FDA-Public Use
  Company Number: NVSC2021BR034878

PATIENT
  Age: 8 Year
  Sex: Male

DRUGS (1)
  1. TRILEPTAL [Suspect]
     Active Substance: OXCARBAZEPINE
     Indication: PRODUCT USED FOR UNKNOWN INDICATION
     Dosage: AT MORNING
     Route: 065
     Dates: start: 200702

REACTIONS (6)
  - Gait disturbance [Not Recovered/Not Resolved]
  - Epilepsy [Not Recovered/Not Resolved]
  - Loss of proprioception [Not Recovered/Not Resolved]
  - Glycogen storage disease type II [Recovered/Resolved with Sequelae]
  - Feeding disorder [Not Recovered/Not Resolved]
  - Dysphagia [Not Recovered/Not Resolved]

NARRATIVE: CASE EVENT DATE: 20121026
